FAERS Safety Report 9133605 (Version 1)
Quarter: 2013Q1

REPORT INFORMATION
  Report Type: Spontaneous
  Country: US (occurrence: US)
  Receive Date: 20130123
  Receipt Date: 20130123
  Transmission Date: 20140127
  Serious: Yes (Other)
  Sender: FDA-Public Use
  Company Number: US-RB-048757-13

PATIENT
  Sex: Female
  Weight: 64 kg

DRUGS (3)
  1. SUBOXONE TABLET [Suspect]
     Indication: DRUG DEPENDENCE
     Dosage: DOSE OF 16 MG PER DAY
     Route: 060
     Dates: start: 20051208, end: 20060115
  2. SUBUTEX [Suspect]
     Indication: DRUG DEPENDENCE
     Route: 060
     Dates: start: 20060116
  3. TOBACCO LEAF [Suspect]
     Indication: PRODUCT USED FOR UNKNOWN INDICATION
     Dosage: SMOKES 1 PACK OF CIGARETTES PER DAY

REACTIONS (3)
  - Premature delivery [Recovered/Resolved]
  - Exposure during pregnancy [Recovered/Resolved]
  - Pregnancy [None]
